FAERS Safety Report 6179859-6 (Version None)
Quarter: 2009Q2

REPORT INFORMATION
  Report Type: 
  Country: None (occurrence: None)
  Receive Date: 20090501
  Receipt Date: 20090423
  Transmission Date: 20091009
  Serious: Yes (Disabling)
  Sender: FDA-Public Use
  Company Number: APP200900220

PATIENT
  Sex: Female

DRUGS (6)
  1. SENSORCAINE [Suspect]
     Indication: MUSCULOSKELETAL PAIN
     Dosage: CONTINUOUS VIA PUMP, INTRA-ARTICULAR
     Route: 014
     Dates: start: 20020624
  2. SENSORCAINE [Suspect]
     Indication: MUSCULOSKELETAL PAIN
     Dosage: CONTINUOUS VIA PUMP, INTRA-ARTICULAR
     Route: 014
     Dates: start: 20040607
  3. XYLOCAINE [Suspect]
     Indication: MUSCULOSKELETAL PAIN
     Dosage: CONTINUOUS VIA PUMP, INTRA-ARTICULAR
     Route: 014
     Dates: start: 20020624
  4. XYLOCAINE [Suspect]
     Indication: MUSCULOSKELETAL PAIN
     Dosage: CONTINUOUS VIA PUMP, INTRA-ARTICULAR
     Route: 014
     Dates: start: 20040607
  5. I-FLOW PAIN PUMP [Suspect]
     Indication: MUSCULOSKELETAL PAIN
     Dates: start: 20020624
  6. I-FLOW PAIN PUMP [Suspect]
     Indication: MUSCULOSKELETAL PAIN
     Dates: start: 20040607

REACTIONS (2)
  - CHONDROLYSIS [None]
  - OSTEOARTHRITIS [None]
